FAERS Safety Report 9581947 (Version 2)
Quarter: 2013Q4

REPORT INFORMATION
  Report Type: Spontaneous
  Country: US (occurrence: US)
  Receive Date: 20131002
  Receipt Date: 20131029
  Transmission Date: 20140711
  Serious: Yes (Death)
  Sender: FDA-Public Use
  Company Number: US-CELGENEUS-163-21880-13094258

PATIENT
  Age: 52 Year
  Sex: Male

DRUGS (8)
  1. REVLIMID [Suspect]
     Indication: CHRONIC LYMPHOCYTIC LEUKAEMIA
     Dosage: 5 MILLIGRAM
     Route: 048
     Dates: start: 20130911, end: 20130913
  2. BACTRIM DS [Concomitant]
     Indication: PROPHYLAXIS
     Route: 065
     Dates: start: 20121214, end: 20130922
  3. TRAMADOL HCL [Concomitant]
     Indication: PRODUCT USED FOR UNKNOWN INDICATION
     Route: 065
  4. PROMETHAZINE HCL [Concomitant]
     Indication: PRODUCT USED FOR UNKNOWN INDICATION
     Route: 065
  5. ULTRAM [Concomitant]
     Indication: PAIN
     Dosage: 1-2
     Route: 065
     Dates: start: 20121018, end: 20130922
  6. ASPIRIN [Concomitant]
     Indication: DIABETES MELLITUS
     Route: 065
     Dates: end: 20130922
  7. ALLOPURINOL [Concomitant]
     Indication: CHEMOTHERAPY
     Dosage: 300 MILLIGRAM
     Route: 065
     Dates: start: 20121214, end: 20130922
  8. ZOVIRAX [Concomitant]
     Indication: PROPHYLAXIS
     Dosage: 800 MILLIGRAM
     Route: 065
     Dates: start: 20121214, end: 20130922

REACTIONS (1)
  - Chronic lymphocytic leukaemia [Fatal]
